FAERS Safety Report 6209658-8 (Version None)
Quarter: 2009Q2

REPORT INFORMATION
  Report Type: 
  Country: None (occurrence: None)
  Receive Date: 20090601
  Receipt Date: 20090525
  Transmission Date: 20091009
  Serious: Yes (Hospitalization)
  Sender: FDA-Public Use
  Company Number: BR-BAYER-200819675LA

PATIENT
  Age: 30 Year
  Sex: Female
  Weight: 58 kg

DRUGS (1)
  1. MIRENA [Suspect]
     Indication: CONTRACEPTION
     Dosage: FREQUENCY: CONTINUOUS
     Route: 015
     Dates: start: 20080903, end: 20081011

REACTIONS (13)
  - CRYING [None]
  - EMOTIONAL DISTRESS [None]
  - FLATULENCE [None]
  - HAEMORRHAGIC OVARIAN CYST [None]
  - HALLUCINATION [None]
  - OVARIAN TORSION [None]
  - PELVIC INFECTION [None]
  - PELVIC PAIN [None]
  - POST PROCEDURAL HAEMORRHAGE [None]
  - PYREXIA [None]
  - UTERINE DISORDER [None]
  - VAGINAL DISCHARGE [None]
  - VAGINAL HAEMORRHAGE [None]
